FAERS Safety Report 24527797 (Version 1)
Quarter: 2024Q4

REPORT INFORMATION
  Report Type: Report from Study
  Country: CA (occurrence: CA)
  Receive Date: 20241021
  Receipt Date: 20241021
  Transmission Date: 20250115
  Serious: Yes (Other)
  Sender: DR REDDYS
  Company Number: CA-DRL-USA-CLI/CAN/24/0015515

PATIENT
  Age: 52 Year
  Sex: Female

DRUGS (2)
  1. ZOLEDRONIC ACID [Suspect]
     Active Substance: ZOLEDRONIC ACID
     Indication: Osteoporosis
     Dosage: DOSE: 5MG/100ML
     Route: 065
     Dates: start: 20210825
  2. Stelara 90mg Q4 weeks [Concomitant]
     Indication: Product used for unknown indication
     Route: 065

REACTIONS (1)
  - Intestinal obstruction [Unknown]
